FAERS Safety Report 6137059-X (Version None)
Quarter: 2009Q1

REPORT INFORMATION
  Report Type: 
  Country: None (occurrence: None)
  Receive Date: 20090326
  Receipt Date: 20090312
  Transmission Date: 20090719
  Serious: Yes (Life-Threatening)
  Sender: FDA-Public Use
  Company Number: AE-2008-055

PATIENT
  Age: 76 Year
  Sex: Male
  Weight: 91 kg

DRUGS (5)
  1. METOPROLOL TARTRATE [Suspect]
     Indication: HYPERTENSION
     Dosage: 50MG, BID,ORAL
     Route: 048
  2. LISINOPRIL [Suspect]
     Indication: HYPERTENSION
     Dosage: 15MG,BID,ORAL
     Route: 048
  3. AMLODIPINE BESYLATE [Concomitant]
  4. ASPIRIN [Concomitant]
  5. EXFORGE [Concomitant]

REACTIONS (1)
  - BRADYCARDIA [None]
